FAERS Safety Report 6869623-4 (Version None)
Quarter: 2010Q3

REPORT INFORMATION
  Report Type: 
  Country: None (occurrence: None)
  Receive Date: 20100722
  Receipt Date: 20080930
  Transmission Date: 20110219
  Serious: No
  Sender: FDA-Public Use
  Company Number: US-PFIZER INC-2008069165

PATIENT
  Sex: Male
  Weight: 77.11 kg

DRUGS (5)
  1. CHANTIX [Suspect]
     Indication: SMOKING CESSATION THERAPY
     Route: 048
     Dates: start: 20080101
  2. VITAMINS [Concomitant]
  3. VITAMINS [Concomitant]
  4. DRUG, UNSPECIFIED [Concomitant]
     Indication: DYSPEPSIA
  5. DRUG, UNSPECIFIED [Concomitant]

REACTIONS (2)
  - AGITATION [None]
  - TREMOR [None]
